FAERS Safety Report 17229230 (Version 2)
Quarter: 2020Q1

REPORT INFORMATION
  Report Type: Spontaneous
  Country: GB (occurrence: GB)
  Receive Date: 20200103
  Receipt Date: 20200109
  Transmission Date: 20200409
  Serious: Yes (Hospitalization)
  Sender: FDA-Public Use
  Company Number: GB-BRISTOL-MYERS SQUIBB COMPANY-BMS-2019-123618

PATIENT
  Age: 66 Year
  Sex: Female

DRUGS (2)
  1. LIDOCAINE HYDROCHLORIDE. [Suspect]
     Active Substance: LIDOCAINE HYDROCHLORIDE
     Indication: TRIGGER FINGER
     Dosage: 0.25 MILLILITER
     Route: 058
     Dates: start: 20180913
  2. TRIAMCINOLONE ACETONIDE. [Suspect]
     Active Substance: TRIAMCINOLONE ACETONIDE
     Indication: TRIGGER FINGER
     Dosage: 10 MILLIGRAM
     Route: 058
     Dates: start: 20180913, end: 20180913

REACTIONS (8)
  - Arthralgia [Unknown]
  - Peripheral swelling [Recovering/Resolving]
  - Bone disorder [Unknown]
  - Ulna fracture [Unknown]
  - Joint swelling [Unknown]
  - Soft tissue swelling [Unknown]
  - Intentional product use issue [Unknown]
  - Pain in extremity [Unknown]

NARRATIVE: CASE EVENT DATE: 20180917
